FAERS Safety Report 5121277-3 (Version None)
Quarter: 2006Q4

REPORT INFORMATION
  Report Type: 
  Country: None (occurrence: None)
  Receive Date: 20061002
  Receipt Date: 20060922
  Transmission Date: 20070319
  Serious: Yes (Disabling)
  Sender: FDA-Public Use
  Company Number: 06H-163-0310379-00

PATIENT
  Age: 21 Year
  Sex: Male

DRUGS (1)
  1. MARCAINE [Suspect]
     Indication: POSTOPERATIVE ANALGESIA
     Dosage: CONTINUOUS INFUSION

REACTIONS (3)
  - CHONDROLYSIS [None]
  - POST PROCEDURAL COMPLICATION [None]
  - SURGICAL PROCEDURE REPEATED [None]
